FAERS Safety Report 5158705-3 (Version None)
Quarter: 2006Q4

REPORT INFORMATION
  Report Type: 
  Country: None (occurrence: None)
  Receive Date: 20061128
  Receipt Date: 20061114
  Transmission Date: 20070319
  Serious: Yes (Hospitalization, Disabling, Other)
  Sender: FDA-Public Use
  Company Number: US-GLAXOSMITHKLINE-A0627486A

PATIENT
  Age: 21 Year
  Sex: Female

DRUGS (2)
  1. ARRANON [Suspect]
     Dosage: 1500MG ALTERNATE DAYS
     Route: 042
  2. UNKNOWN [Concomitant]

REACTIONS (4)
  - GAIT DISTURBANCE [None]
  - MONOPLEGIA [None]
  - NEUROPATHY [None]
  - SENSORY LOSS [None]
